FAERS Safety Report 12667885 (Version 1)
Quarter: 2016Q3

REPORT INFORMATION
  Report Type: Report from Study
  Country: CA (occurrence: CA)
  Receive Date: 20160819
  Receipt Date: 20160819
  Transmission Date: 20161109
  Serious: Yes (Death)
  Sender: FDA-Public Use
  Company Number: CA-009507513-1608CAN009445

PATIENT
  Sex: Male
  Weight: 51 kg

DRUGS (1)
  1. PEMBROLIZUMAB. [Suspect]
     Active Substance: PEMBROLIZUMAB
     Indication: METASTATIC MALIGNANT MELANOMA
     Dosage: STRENGTH: 2 MG/KG; 108 MG, Q3W
     Route: 042
     Dates: start: 20160318, end: 20160429

REACTIONS (1)
  - Death [Fatal]
